FAERS Safety Report 14403520 (Version 1)
Quarter: 2018Q1

REPORT INFORMATION
  Report Type: Spontaneous
  Country: US (occurrence: US)
  Receive Date: 20180116
  Receipt Date: 20180116
  Transmission Date: 20180509
  Serious: No
  Sender: FDA-Public Use
  Company Number: None

PATIENT
  Age: 66 Year
  Sex: Female

DRUGS (1)
  1. PROLIA [Suspect]
     Active Substance: DENOSUMAB
     Indication: OSTEOPOROSIS
     Dosage: FREQUENCY - EVERY 6 MONTHS
     Route: 058
     Dates: start: 20170104

REACTIONS (5)
  - Intraocular pressure increased [None]
  - Nasopharyngitis [None]
  - Influenza like illness [None]
  - Fatigue [None]
  - Infection [None]

NARRATIVE: CASE EVENT DATE: 20170118
